FAERS Safety Report 7866546-9 (Version None)
Quarter: 2011Q4

REPORT INFORMATION
  Report Type: 
  Country: None (occurrence: None)
  Receive Date: 20111028
  Receipt Date: 20110705
  Transmission Date: 20120403
  Serious: No
  Sender: FDA-Public Use
  Company Number: US-GLAXOSMITHKLINE-A0934947A

PATIENT
  Age: 75 Year
  Sex: Female

DRUGS (8)
  1. COMBIVENT [Concomitant]
  2. COZAAR [Concomitant]
  3. ADVAIR DISKUS 100/50 [Suspect]
     Indication: CHRONIC OBSTRUCTIVE PULMONARY DISEASE
     Dosage: 1PUFF TWICE PER DAY
     Route: 055
     Dates: start: 20080701
  4. LASIX [Concomitant]
  5. BUSPAR [Concomitant]
  6. OXYGEN [Concomitant]
  7. SPIRIVA [Concomitant]
  8. XALATAN [Concomitant]

REACTIONS (1)
  - DYSPNOEA [None]
